FAERS Safety Report 22383466 (Version 1)
Quarter: 2023Q2

REPORT INFORMATION
  Report Type: Spontaneous
  Country: HU (occurrence: HU)
  Receive Date: 20230530
  Receipt Date: 20230530
  Transmission Date: 20230722
  Serious: Yes (Other)
  Sender: FDA-Public Use
  Company Number: HU-EMA-DD-20230515-7222542-132815

PATIENT
  Age: 58 Year
  Sex: Male

DRUGS (3)
  1. LETROZOLE [Suspect]
     Active Substance: LETROZOLE
     Indication: Breast cancer
     Dosage: UNK
     Route: 065
     Dates: start: 20180725
  2. PALBOCICLIB [Suspect]
     Active Substance: PALBOCICLIB
     Indication: Breast cancer
     Dosage: UNK
     Route: 065
     Dates: start: 20180725
  3. GOSERELIN [Suspect]
     Active Substance: GOSERELIN
     Indication: Breast cancer male
     Dosage: UNKNOWN
     Route: 058
     Dates: start: 20180725

REACTIONS (3)
  - Anaemia [Unknown]
  - Neutropenia [Unknown]
  - Off label use [Unknown]
